FAERS Safety Report 4367723-4 (Version None)
Quarter: 2004Q2

REPORT INFORMATION
  Report Type: 
  Country: None (occurrence: None)
  Receive Date: 20040526
  Receipt Date: 20031112
  Transmission Date: 20050107
  Serious: Yes (Hospitalization)
  Sender: FDA-Public Use
  Company Number: USA030948324

PATIENT
  Age: 75 Year
  Sex: Male
  Weight: 68 kg

DRUGS (6)
  1. ZYPREXA [Suspect]
     Indication: DELUSIONAL DISORDER, PERSECUTORY TYPE
     Dosage: 15 MG/DAY
     Dates: start: 20030701
  2. ASPIRIN [Concomitant]
  3. COLACE (DOCUSATE SODIUM) [Concomitant]
  4. LISINOPRIL [Concomitant]
  5. TETRACYCLINE [Concomitant]
  6. VITAMINS NOS [Concomitant]

REACTIONS (9)
  - BLOOD CREATINE PHOSPHOKINASE INCREASED [None]
  - CONFUSIONAL STATE [None]
  - DYSTONIA [None]
  - HALLUCINATION [None]
  - HALLUCINATION, VISUAL [None]
  - LETHARGY [None]
  - MUSCLE RIGIDITY [None]
  - PARANOIA [None]
  - URINARY TRACT INFECTION [None]
